FAERS Safety Report 21988364 (Version 1)
Quarter: 2023Q1

REPORT INFORMATION
  Report Type: Spontaneous
  Country: NO (occurrence: NO)
  Receive Date: 20230214
  Receipt Date: 20230214
  Transmission Date: 20230418
  Serious: Yes (Disabling)
  Sender: FDA-Public Use
  Company Number: None

PATIENT
  Age: 45 Year
  Sex: Male

DRUGS (1)
  1. CIPROFLOXACIN [Suspect]
     Active Substance: CIPROFLOXACIN
     Indication: Haematospermia
     Route: 065
     Dates: start: 20191010, end: 20191011

REACTIONS (5)
  - Joint swelling [Recovering/Resolving]
  - Myalgia [Recovering/Resolving]
  - Burning sensation [Recovering/Resolving]
  - Eye pain [Recovering/Resolving]
  - Malaise [Recovering/Resolving]

NARRATIVE: CASE EVENT DATE: 20191011
